FAERS Safety Report 4330372-8 (Version None)
Quarter: 2004Q2

REPORT INFORMATION
  Report Type: 
  Country: None (occurrence: None)
  Receive Date: 20040401
  Receipt Date: 20040401
  Transmission Date: 20050107
  Serious: Yes (Hospitalization)
  Sender: FDA-Public Use
  Company Number: None

PATIENT
  Age: 41 Year
  Sex: Female
  Weight: 88.6 kg

DRUGS (1)
  1. SEROQUEL [Suspect]
     Indication: DEPRESSION
     Dosage: 400 MG BID ORAL
     Route: 048
     Dates: start: 20030601, end: 20040102

REACTIONS (7)
  - ABASIA [None]
  - BLOOD CREATINE PHOSPHOKINASE INCREASED [None]
  - BLOOD GLUCOSE INCREASED [None]
  - HYPERGLYCAEMIA [None]
  - MARKEDLY REDUCED DIETARY INTAKE [None]
  - RENAL FAILURE ACUTE [None]
  - URINARY INCONTINENCE [None]
